FAERS Safety Report 15372328 (Version 5)
Quarter: 2020Q3

REPORT INFORMATION
  Report Type: Report from Study
  Country: US (occurrence: US)
  Receive Date: 20180911
  Receipt Date: 20200929
  Transmission Date: 20201102
  Serious: No
  Sender: FDA-Public Use
  Company Number: US-SA-2018SA253952

PATIENT

DRUGS (3)
  1. DUPILUMAB [Suspect]
     Active Substance: DUPILUMAB
     Indication: PSORIASIS
     Dosage: 300 MG, QOW
     Route: 058
     Dates: start: 20180901
  2. IODEX [IODINE] [Suspect]
     Active Substance: IODINE
     Dosage: UNK
  3. DUPILUMAB [Suspect]
     Active Substance: DUPILUMAB
     Indication: DERMATITIS ATOPIC
     Dosage: 300 MG, QOW
     Route: 058
     Dates: start: 2018, end: 202004

REACTIONS (8)
  - Lip swelling [Unknown]
  - Headache [Unknown]
  - Fatigue [Unknown]
  - Ocular hyperaemia [Unknown]
  - Eye irritation [Unknown]
  - Off label use [Unknown]
  - Product use in unapproved indication [Unknown]
  - Photosensitivity reaction [Unknown]

NARRATIVE: CASE EVENT DATE: 20180901
